FAERS Safety Report 9180783 (Version 3)
Quarter: 2013Q2

REPORT INFORMATION
  Report Type: Spontaneous
  Country: GR (occurrence: GR)
  Receive Date: 20130322
  Receipt Date: 20130429
  Transmission Date: 20140414
  Serious: Yes (Other)
  Sender: FDA-Public Use
  Company Number: GR-AMGEN-GRCSP2013010031

PATIENT
  Age: 72 Year
  Sex: Female

DRUGS (3)
  1. PROLIA [Suspect]
     Indication: OSTEOPOROSIS
     Dosage: 60 MG, Q6MO
     Dates: start: 201206
  2. TENORMIN [Concomitant]
     Indication: TACHYCARDIA
  3. CALCIUM                            /00060701/ [Concomitant]

REACTIONS (14)
  - Depression [Unknown]
  - Arrhythmia [Unknown]
  - Panic attack [Unknown]
  - Oesophagitis [Unknown]
  - Blood pressure increased [Unknown]
  - Personality change [Unknown]
  - Sleep disorder [Unknown]
  - Polyp [Unknown]
  - Eosinophil percentage increased [Unknown]
  - Skin sensitisation [Unknown]
  - Oesophageal irritation [Unknown]
  - Tachycardia [Unknown]
  - Vertigo [Unknown]
  - Oedema peripheral [Unknown]
